FAERS Safety Report 7003035-8 (Version None)
Quarter: 2010Q3

REPORT INFORMATION
  Report Type: 
  Country: None (occurrence: None)
  Receive Date: 20100920
  Receipt Date: 20100521
  Transmission Date: 20110219
  Serious: Yes (Other)
  Sender: FDA-Public Use
  Company Number: US-ASTRAZENECA-2006UW22657

PATIENT
  Age: 9295 Day
  Sex: Female
  Weight: 103 kg

DRUGS (15)
  1. SEROQUEL [Suspect]
     Indication: SCHIZOPHRENIA
     Dosage: 25-300 MG
     Route: 048
     Dates: start: 20020401
  2. SEROQUEL [Suspect]
     Indication: BIPOLAR DISORDER
     Dosage: 25-300 MG
     Route: 048
     Dates: start: 20020401
  3. SEROQUEL [Suspect]
     Indication: DEPRESSION
     Dosage: 25-300 MG
     Route: 048
     Dates: start: 20020401
  4. SEROQUEL [Suspect]
     Route: 048
     Dates: end: 20060101
  5. SEROQUEL [Suspect]
     Route: 048
     Dates: end: 20060101
  6. SEROQUEL [Suspect]
     Route: 048
     Dates: end: 20060101
  7. GLIPIZIDE [Concomitant]
     Dosage: 10MG , 1 TABLET BY MOUTH  1/2 HOUR BEFORE BREAKFAST
     Route: 048
     Dates: start: 20050812
  8. ALBUTEROL [Concomitant]
     Route: 048
     Dates: start: 20061218
  9. GEODON [Concomitant]
     Dosage: 60-120 MG
     Route: 048
     Dates: start: 20050812
  10. RISPERDAL [Concomitant]
     Dates: start: 20030807
  11. LEXAPRO [Concomitant]
     Dates: start: 20050812
  12. BUSPAR [Concomitant]
  13. CLONAZEPAM [Concomitant]
  14. ZOLOFT [Concomitant]
     Dosage: 25-50 MG
     Dates: start: 20020401
  15. INDERAL [Concomitant]

REACTIONS (4)
  - DIABETES MELLITUS [None]
  - HYPERGLYCAEMIA [None]
  - SUICIDE ATTEMPT [None]
  - TYPE 2 DIABETES MELLITUS [None]
